FAERS Safety Report 8185874 (Version 7)
Quarter: 2013Q1

REPORT INFORMATION
  Report Type: Spontaneous
  Country: CA (occurrence: CA)
  Receive Date: 20111018
  Receipt Date: 20130116
  Transmission Date: 20140127
  Serious: Yes (Other)
  Sender: FDA-Public Use
  Company Number: PHHY2011CA90376

PATIENT
  Age: 31 Year
  Sex: Female

DRUGS (2)
  1. GILENYA [Suspect]
     Indication: RELAPSING-REMITTING MULTIPLE SCLEROSIS
     Dosage: 0.5 MG, QD
     Route: 048
     Dates: start: 20110818
  2. APO-METRONIDAZOLE [Concomitant]
     Indication: FUNGAL INFECTION
     Dosage: UNK UKN, BID

REACTIONS (9)
  - Fibromyalgia [Unknown]
  - Neuralgia [Unknown]
  - Fatigue [Recovered/Resolved]
  - Ear pain [Unknown]
  - Hypothyroidism [Unknown]
  - Central nervous system lesion [Unknown]
  - Blood cholesterol increased [Unknown]
  - Sinusitis bacterial [Unknown]
  - Headache [Recovered/Resolved]
